FAERS Safety Report 8886975 (Version 2)
Quarter: 2012Q4

REPORT INFORMATION
  Report Type: 
  Country: JP (occurrence: JP)
  Receive Date: 20121105
  Receipt Date: 20121113
  Transmission Date: 20130627
  Serious: Yes (Hospitalization)
  Sender: FDA-Public Use
  Company Number: PHHY2012JP099006

PATIENT
  Age: 1 Year
  Sex: Male

DRUGS (4)
  1. CICLOSPORIN [Suspect]
  2. ETOPOSIDE [Suspect]
  3. DEXAMETHASONE [Suspect]
  4. METHYLPREDNISOLONE [Suspect]

REACTIONS (6)
  - Histiocytosis haematophagic [Unknown]
  - Epstein-Barr virus infection [Unknown]
  - Multiple-drug resistance [Unknown]
  - Pyrexia [Unknown]
  - Hepatic function abnormal [Unknown]
  - Pancytopenia [Unknown]
